FAERS Safety Report 12949097 (Version 3)
Quarter: 2016Q4

REPORT INFORMATION
  Report Type: Spontaneous
  Country: US (occurrence: US)
  Receive Date: 20161117
  Receipt Date: 20161221
  Transmission Date: 20170207
  Serious: No
  Sender: FDA-Public Use
  Company Number: US-PFIZER INC-2016501765

PATIENT
  Age: 61 Year
  Sex: Male
  Weight: 86.2 kg

DRUGS (17)
  1. VANCOMYCIN HCL [Concomitant]
     Active Substance: VANCOMYCIN HYDROCHLORIDE
     Dosage: 125 MG, UNK
  2. ATOVAQUONE. [Concomitant]
     Active Substance: ATOVAQUONE
     Dosage: UNK (750MG)
  3. METOPROLOL SUCCINATE. [Concomitant]
     Active Substance: METOPROLOL SUCCINATE
     Dosage: 25 MG, UNK
  4. ONDANSETRON ODT DRLA [Concomitant]
     Dosage: 8 MG, UNK
  5. BOSULIF [Suspect]
     Active Substance: BOSUTINIB MONOHYDRATE
     Dosage: 500 MG, DAILY
     Route: 048
  6. DEXAMETHASONE. [Concomitant]
     Active Substance: DEXAMETHASONE
     Dosage: 4 MG, UNK
  7. DEXAMETHASONE SODIUM PHOSPHATE. [Concomitant]
     Active Substance: DEXAMETHASONE SODIUM PHOSPHATE
     Dosage: UNK %, UNK
  8. BOSULIF [Suspect]
     Active Substance: BOSUTINIB MONOHYDRATE
     Indication: ACUTE LYMPHOCYTIC LEUKAEMIA RECURRENT
     Dosage: 400 MG, DAILY
     Route: 048
     Dates: start: 20160819
  9. FAMCICLOVIR. [Concomitant]
     Active Substance: FAMCICLOVIR
     Dosage: 500 MG, UNK
  10. SPRYCEL [Concomitant]
     Active Substance: DASATINIB
  11. PREDNISONE. [Concomitant]
     Active Substance: PREDNISONE
     Dosage: 5 MG, UNK
  12. MAXIDEX [Concomitant]
     Active Substance: DEXAMETHASONE
     Dosage: 0.1 %, UNK
  13. BOSULIF [Suspect]
     Active Substance: BOSUTINIB MONOHYDRATE
     Dosage: 300 MG, DAILY
     Route: 048
  14. NEULASTA [Concomitant]
     Active Substance: PEGFILGRASTIM
     Dosage: 0.6 ML
  15. ONDANSETRON [Concomitant]
     Active Substance: ONDANSETRON
     Dosage: 8 MG, UNK
  16. LACTAID [Concomitant]
     Active Substance: LACTASE
     Dosage: (3000 UN)
  17. LIDOCAINE AND PRILOCAINE [Concomitant]
     Active Substance: LIDOCAINE\PRILOCAINE
     Dosage: UNK [LIDOCAINE 2.5%/ PRILOCAINE 2]

REACTIONS (1)
  - Diarrhoea [Recovered/Resolved]
